FAERS Safety Report 19071555 (Version 1)
Quarter: 2021Q1

REPORT INFORMATION
  Report Type: Spontaneous
  Country: US (occurrence: US)
  Receive Date: 20210330
  Receipt Date: 20210330
  Transmission Date: 20210420
  Serious: No
  Sender: FDA-Public Use
  Company Number: US-BIOGEN-2020BI00838111

PATIENT
  Age: 48 Year
  Sex: Female

DRUGS (6)
  1. XANAX [Concomitant]
     Active Substance: ALPRAZOLAM
     Route: 065
  2. TECFIDERA [Suspect]
     Active Substance: DIMETHYL FUMARATE
     Route: 065
     Dates: start: 202001
  3. TECFIDERA [Suspect]
     Active Substance: DIMETHYL FUMARATE
     Route: 065
  4. TECFIDERA [Suspect]
     Active Substance: DIMETHYL FUMARATE
     Indication: MULTIPLE SCLEROSIS
     Dosage: TAKE 1 CAPSULE BY MOUTH TWICE A DAY
     Route: 048
  5. TOPAMAX [Concomitant]
     Active Substance: TOPIRAMATE
     Route: 065
  6. BENADRYL ALLERGY [Concomitant]
     Active Substance: DIPHENHYDRAMINE HYDROCHLORIDE
     Route: 065

REACTIONS (6)
  - Product dose omission issue [Unknown]
  - Pain in extremity [Unknown]
  - Diarrhoea [Unknown]
  - Gastric disorder [Not Recovered/Not Resolved]
  - Rash erythematous [Unknown]
  - Nausea [Unknown]

NARRATIVE: CASE EVENT DATE: 202001
